FAERS Safety Report 8087921-6 (Version None)
Quarter: 2012Q1

REPORT INFORMATION
  Report Type: 
  Country: None (occurrence: None)
  Receive Date: 20120128
  Receipt Date: 20110411
  Transmission Date: 20120608
  Serious: No
  Sender: FDA-Public Use
  Company Number: US-ABBOTT-11P-163-0718218-00

PATIENT
  Sex: Female
  Weight: 70.37 kg

DRUGS (3)
  1. IRON SUPPLEMENT [Concomitant]
     Indication: ANAEMIA
  2. HUMIRA [Suspect]
     Indication: COLITIS
     Dates: start: 20100701
  3. FOSAMAX [Concomitant]
     Indication: PRODUCT USED FOR UNKNOWN INDICATION

REACTIONS (1)
  - INJECTION SITE PAIN [None]
